FAERS Safety Report 8966920 (Version 2)
Quarter: 2013Q1

REPORT INFORMATION
  Report Type: Spontaneous
  Country: AU (occurrence: AU)
  Receive Date: 20121214
  Receipt Date: 20130321
  Transmission Date: 20140127
  Serious: Yes (Other)
  Sender: FDA-Public Use
  Company Number: AU-ABBOTT-12P-008-1021206-00

PATIENT
  Sex: Male

DRUGS (1)
  1. LUCRIN [Suspect]
     Indication: PRODUCT USED FOR UNKNOWN INDICATION

REACTIONS (7)
  - Loss of consciousness [Unknown]
  - Syncope [Unknown]
  - Swelling face [Unknown]
  - Hot flush [Unknown]
  - Constipation [Unknown]
  - Dizziness [Unknown]
  - Heart rate decreased [Unknown]
